FAERS Safety Report 7319396-6 (Version None)
Quarter: 2011Q1

REPORT INFORMATION
  Report Type: 
  Country: None (occurrence: None)
  Receive Date: 20110228
  Receipt Date: 20100304
  Transmission Date: 20110831
  Serious: No
  Sender: FDA-Public Use
  Company Number: A0848363A

PATIENT
  Age: 47 Year
  Sex: Male

DRUGS (3)
  1. LAMICTAL [Suspect]
     Indication: BIPOLAR DISORDER
     Dosage: 350MG PER DAY
     Route: 048
     Dates: start: 20090801
  2. ADDERALL 10 [Concomitant]
  3. XANAX [Concomitant]

REACTIONS (2)
  - RASH [None]
  - HEAT RASH [None]
